FAERS Safety Report 10495796 (Version 2)
Quarter: 2014Q4

REPORT INFORMATION
  Report Type: Spontaneous
  Country: FR (occurrence: FR)
  Receive Date: 20141003
  Receipt Date: 20141003
  Transmission Date: 20150528
  Serious: Yes (Other)
  Sender: FDA-Public Use
  Company Number: FR-009507513-1409FRA000722

PATIENT
  Sex: Female
  Weight: 53 kg

DRUGS (6)
  1. HYZAAR [Suspect]
     Active Substance: HYDROCHLOROTHIAZIDE\LOSARTAN POTASSIUM
     Indication: HYPERTENSION
     Dosage: 1 TABLET, QD
     Route: 048
     Dates: start: 1996, end: 2013
  2. INEXIUM (ESOMEPRAZOLE SODIUM) [Concomitant]
     Active Substance: ESOMEPRAZOLE
     Indication: HIATUS HERNIA
     Dosage: 1 DF, QD
     Dates: start: 2008, end: 2010
  3. LEVOTHYROXINE SODIUM. [Concomitant]
     Active Substance: LEVOTHYROXINE SODIUM
     Indication: THYROID DISORDER
     Dosage: 1 DF, QD
     Route: 048
     Dates: start: 1990
  4. NEBIVOLOL [Concomitant]
     Active Substance: NEBIVOLOL
     Indication: HEART RATE DECREASED
     Dosage: 1 DF, QD
     Dates: start: 201309
  5. OROPERIDYS [Concomitant]
     Active Substance: DOMPERIDONE
     Indication: AEROPHAGIA
     Dosage: TOTAL DAILY DOSE: 3 DF
     Dates: start: 2008, end: 2010
  6. FORTZAAR 100 MG/25 MG, COMPRIM? PELLICUL? [Suspect]
     Active Substance: HYDROCHLOROTHIAZIDE\LOSARTAN POTASSIUM
     Indication: HYPERTENSION
     Dosage: 1 TABLET, QD
     Route: 048
     Dates: start: 201309

REACTIONS (5)
  - Colitis [Not Recovered/Not Resolved]
  - Bronchitis chronic [Not Recovered/Not Resolved]
  - Quality of life decreased [Unknown]
  - Insomnia [Unknown]
  - Cholecystectomy [Recovered/Resolved]

NARRATIVE: CASE EVENT DATE: 2007
